FAERS Safety Report 7052530-4 (Version None)
Quarter: 2010Q4

REPORT INFORMATION
  Report Type: 
  Country: None (occurrence: None)
  Receive Date: 20101019
  Receipt Date: 20101014
  Transmission Date: 20110411
  Serious: Yes (Other)
  Sender: FDA-Public Use
  Company Number: US-AMGEN INC.-USASP2010000142

PATIENT

DRUGS (2)
  1. ENBREL [Suspect]
     Indication: RHEUMATOID ARTHRITIS
     Dates: start: 20100427
  2. TREXALL [Concomitant]
     Dates: start: 20090101

REACTIONS (3)
  - DEPRESSION [None]
  - DIARRHOEA [None]
  - PAIN [None]
